FAERS Safety Report 23905642 (Version 2)
Quarter: 2025Q1

REPORT INFORMATION
  Report Type: Spontaneous
  Country: BE (occurrence: BE)
  Receive Date: 20240527
  Receipt Date: 20250310
  Transmission Date: 20250409
  Serious: Yes (Congenital Anomaly, Other)
  Sender: TEVA
  Company Number: BE-TEVA-VS-3202706

PATIENT
  Sex: Male

DRUGS (2)
  1. COPAXONE [Suspect]
     Active Substance: GLATIRAMER ACETATE
     Indication: Product used for unknown indication
     Route: 064
     Dates: start: 20211019
  2. COPAXONE [Suspect]
     Active Substance: GLATIRAMER ACETATE
     Route: 063

REACTIONS (3)
  - Anal atresia [Unknown]
  - Foetal exposure during pregnancy [Unknown]
  - Exposure via breast milk [Unknown]
